FAERS Safety Report 16662132 (Version 2)
Quarter: 2020Q1

REPORT INFORMATION
  Report Type: Report from Study
  Country: US (occurrence: US)
  Receive Date: 20190802
  Receipt Date: 20200129
  Transmission Date: 20200409
  Serious: No
  Sender: FDA-Public Use
  Company Number: US-EXELIXIS-CABO-18017574

PATIENT
  Sex: Male

DRUGS (17)
  1. TRESIBA [Concomitant]
     Active Substance: INSULIN DEGLUDEC
  2. LOSARTAN. [Concomitant]
     Active Substance: LOSARTAN
  3. GLIMEPIRIDE. [Concomitant]
     Active Substance: GLIMEPIRIDE
  4. ATORVASTATIN [Concomitant]
     Active Substance: ATORVASTATIN
  5. ASPIRIN. [Concomitant]
     Active Substance: ASPIRIN
  6. AMLODIPINE BESYLATE. [Concomitant]
     Active Substance: AMLODIPINE BESYLATE
  7. HYDROCHLOROTHIAZIDE. [Concomitant]
     Active Substance: HYDROCHLOROTHIAZIDE
  8. TRAMADOL. [Concomitant]
     Active Substance: TRAMADOL
  9. OMEPRAZOLE. [Concomitant]
     Active Substance: OMEPRAZOLE
  10. METOPROLOL. [Concomitant]
     Active Substance: METOPROLOL
  11. CELEXA [Concomitant]
     Active Substance: CITALOPRAM HYDROBROMIDE
  12. PIOGLITAZONE. [Concomitant]
     Active Substance: PIOGLITAZONE
  13. POTASSIUM [Concomitant]
     Active Substance: POTASSIUM
  14. CLONIDINE. [Concomitant]
     Active Substance: CLONIDINE
  15. CABOMETYX [Suspect]
     Active Substance: CABOZANTINIB S-MALATE
     Indication: RENAL CANCER
     Dosage: 60 MG, QD
     Route: 048
     Dates: start: 20181018, end: 2018
  16. ISOSORBIDE. [Concomitant]
     Active Substance: ISOSORBIDE
  17. FERROUS [Concomitant]
     Active Substance: IRON

REACTIONS (1)
  - Genital blister [Recovered/Resolved]

NARRATIVE: CASE EVENT DATE: 2018
